FAERS Safety Report 25358944 (Version 6)
Quarter: 2025Q3

REPORT INFORMATION
  Report Type: Spontaneous
  Country: EU (occurrence: EU)
  Receive Date: 20250526
  Receipt Date: 20250806
  Transmission Date: 20251021
  Serious: Yes (Other)
  Sender: MYLAN
  Company Number: EU-BRISTOL-MYERS SQUIBB COMPANY-2025-067969

PATIENT
  Age: 47 Year
  Sex: Female

DRUGS (68)
  1. TRAMADOL [Interacting]
     Active Substance: TRAMADOL
     Indication: Sacral pain
     Dosage: 100 MILLIGRAM, TID
     Route: 048
  2. TRAMADOL [Interacting]
     Active Substance: TRAMADOL
     Indication: Facial pain
     Dosage: 100 MILLIGRAM, TID
  3. TRAMADOL [Interacting]
     Active Substance: TRAMADOL
     Indication: Back pain
     Dosage: 100 MILLIGRAM, TID
  4. TRAMADOL [Interacting]
     Active Substance: TRAMADOL
     Dosage: 100 MILLIGRAM, TID
     Route: 048
  5. TRAMADOL [Interacting]
     Active Substance: TRAMADOL
     Dosage: 200 MILLIGRAM, QD
     Route: 048
  6. TRAMADOL [Interacting]
     Active Substance: TRAMADOL
     Dosage: 200 MILLIGRAM, QD
  7. TRAMADOL [Interacting]
     Active Substance: TRAMADOL
     Dosage: 200 MILLIGRAM, QD
  8. TRAMADOL [Interacting]
     Active Substance: TRAMADOL
     Dosage: 200 MILLIGRAM, QD
     Route: 048
  9. METOPROLOL [Interacting]
     Active Substance: METOPROLOL
     Indication: Atrial fibrillation
     Dosage: 50 MILLIGRAM, BID
  10. METOPROLOL [Interacting]
     Active Substance: METOPROLOL
     Dosage: 50 MILLIGRAM, BID
     Route: 048
  11. METOPROLOL [Interacting]
     Active Substance: METOPROLOL
     Dosage: 50 MILLIGRAM, BID
     Route: 048
  12. METOPROLOL [Interacting]
     Active Substance: METOPROLOL
     Dosage: 50 MILLIGRAM, BID
  13. APIXABAN [Suspect]
     Active Substance: APIXABAN
     Indication: Atrial fibrillation
  14. APIXABAN [Suspect]
     Active Substance: APIXABAN
     Route: 065
  15. APIXABAN [Suspect]
     Active Substance: APIXABAN
     Route: 065
  16. APIXABAN [Suspect]
     Active Substance: APIXABAN
  17. RAMIPRIL [Suspect]
     Active Substance: RAMIPRIL
     Indication: Atrial fibrillation
  18. RAMIPRIL [Suspect]
     Active Substance: RAMIPRIL
     Route: 065
  19. RAMIPRIL [Suspect]
     Active Substance: RAMIPRIL
     Route: 065
  20. RAMIPRIL [Suspect]
     Active Substance: RAMIPRIL
  21. DICLOFENAC [Suspect]
     Active Substance: DICLOFENAC
     Indication: Arthralgia
     Dosage: 150 MILLIGRAM, QD (1X150MG)
  22. DICLOFENAC [Suspect]
     Active Substance: DICLOFENAC
     Dosage: 150 MILLIGRAM, QD (1X150MG)
     Route: 048
  23. DICLOFENAC [Suspect]
     Active Substance: DICLOFENAC
     Dosage: 150 MILLIGRAM, QD (1X150MG)
     Route: 048
  24. DICLOFENAC [Suspect]
     Active Substance: DICLOFENAC
     Dosage: 150 MILLIGRAM, QD (1X150MG)
  25. DAPAGLIFLOZIN [Suspect]
     Active Substance: DAPAGLIFLOZIN
     Indication: Product used for unknown indication
  26. DAPAGLIFLOZIN [Suspect]
     Active Substance: DAPAGLIFLOZIN
     Route: 065
  27. DAPAGLIFLOZIN [Suspect]
     Active Substance: DAPAGLIFLOZIN
     Route: 065
  28. DAPAGLIFLOZIN [Suspect]
     Active Substance: DAPAGLIFLOZIN
  29. AMIODARONE [Interacting]
     Active Substance: AMIODARONE
     Indication: Atrial fibrillation
     Dosage: 400 MILLIGRAM, QD
  30. AMIODARONE [Interacting]
     Active Substance: AMIODARONE
     Dosage: 400 MILLIGRAM, QD
     Route: 048
  31. AMIODARONE [Interacting]
     Active Substance: AMIODARONE
     Dosage: 400 MILLIGRAM, QD
     Route: 048
  32. AMIODARONE [Interacting]
     Active Substance: AMIODARONE
     Dosage: 400 MILLIGRAM, QD
  33. ESCITALOPRAM [Suspect]
     Active Substance: ESCITALOPRAM OXALATE
     Indication: Product used for unknown indication
     Dosage: 20 MILLIGRAM, QD
     Route: 048
  34. ESCITALOPRAM [Suspect]
     Active Substance: ESCITALOPRAM OXALATE
     Dosage: 20 MILLIGRAM, QD
  35. CARBAMAZEPINE [Interacting]
     Active Substance: CARBAMAZEPINE
     Indication: Trigeminal neuralgia
     Dosage: 800 MILLIGRAM, QD
  36. CARBAMAZEPINE [Interacting]
     Active Substance: CARBAMAZEPINE
     Dosage: 800 MILLIGRAM, QD
     Route: 065
  37. CARBAMAZEPINE [Interacting]
     Active Substance: CARBAMAZEPINE
     Dosage: 800 MILLIGRAM, QD
     Route: 065
  38. CARBAMAZEPINE [Interacting]
     Active Substance: CARBAMAZEPINE
     Dosage: 800 MILLIGRAM, QD
  39. DIPHENHYDRAMINE [Interacting]
     Active Substance: DIPHENHYDRAMINE
     Indication: Product used for unknown indication
     Route: 065
  40. DIPHENHYDRAMINE [Interacting]
     Active Substance: DIPHENHYDRAMINE
  41. CYANOCOBALAMIN\PYRIDOXINE HYDROCHLORIDE\THIAMINE [Interacting]
     Active Substance: CYANOCOBALAMIN\PYRIDOXINE HYDROCHLORIDE\THIAMINE
     Indication: Trigeminal neuralgia
  42. CYANOCOBALAMIN\PYRIDOXINE HYDROCHLORIDE\THIAMINE [Interacting]
     Active Substance: CYANOCOBALAMIN\PYRIDOXINE HYDROCHLORIDE\THIAMINE
     Route: 065
  43. CYANOCOBALAMIN\PYRIDOXINE HYDROCHLORIDE\THIAMINE [Interacting]
     Active Substance: CYANOCOBALAMIN\PYRIDOXINE HYDROCHLORIDE\THIAMINE
     Route: 065
  44. CYANOCOBALAMIN\PYRIDOXINE HYDROCHLORIDE\THIAMINE [Interacting]
     Active Substance: CYANOCOBALAMIN\PYRIDOXINE HYDROCHLORIDE\THIAMINE
  45. TRAMADOL [Interacting]
     Active Substance: TRAMADOL
     Indication: Facial pain
  46. TRAMADOL [Interacting]
     Active Substance: TRAMADOL
     Route: 048
  47. TRAMADOL [Interacting]
     Active Substance: TRAMADOL
     Route: 048
  48. TRAMADOL [Interacting]
     Active Substance: TRAMADOL
  49. ASPIRIN [Suspect]
     Active Substance: ASPIRIN
     Indication: Product used for unknown indication
  50. ASPIRIN [Suspect]
     Active Substance: ASPIRIN
     Route: 065
  51. ASPIRIN [Suspect]
     Active Substance: ASPIRIN
     Route: 065
  52. ASPIRIN [Suspect]
     Active Substance: ASPIRIN
  53. BISOPROLOL [Concomitant]
     Active Substance: BISOPROLOL
  54. BISOPROLOL [Concomitant]
     Active Substance: BISOPROLOL
     Route: 065
  55. BISOPROLOL [Concomitant]
     Active Substance: BISOPROLOL
     Route: 065
  56. BISOPROLOL [Concomitant]
     Active Substance: BISOPROLOL
  57. WARFARIN [Concomitant]
     Active Substance: WARFARIN
  58. WARFARIN [Concomitant]
     Active Substance: WARFARIN
     Route: 065
  59. WARFARIN [Concomitant]
     Active Substance: WARFARIN
     Route: 065
  60. WARFARIN [Concomitant]
     Active Substance: WARFARIN
  61. POTASSIUM [Concomitant]
     Active Substance: POTASSIUM
  62. POTASSIUM [Concomitant]
     Active Substance: POTASSIUM
     Route: 065
  63. POTASSIUM [Concomitant]
     Active Substance: POTASSIUM
     Route: 065
  64. POTASSIUM [Concomitant]
     Active Substance: POTASSIUM
  65. CYANOCOBALAMIN\PYRIDOXINE HYDROCHLORIDE\THIAMINE [Interacting]
     Active Substance: CYANOCOBALAMIN\PYRIDOXINE HYDROCHLORIDE\THIAMINE
     Indication: Trigeminal neuralgia
  66. CYANOCOBALAMIN\PYRIDOXINE HYDROCHLORIDE\THIAMINE [Interacting]
     Active Substance: CYANOCOBALAMIN\PYRIDOXINE HYDROCHLORIDE\THIAMINE
     Route: 065
  67. CYANOCOBALAMIN\PYRIDOXINE HYDROCHLORIDE\THIAMINE [Interacting]
     Active Substance: CYANOCOBALAMIN\PYRIDOXINE HYDROCHLORIDE\THIAMINE
     Route: 065
  68. CYANOCOBALAMIN\PYRIDOXINE HYDROCHLORIDE\THIAMINE [Interacting]
     Active Substance: CYANOCOBALAMIN\PYRIDOXINE HYDROCHLORIDE\THIAMINE

REACTIONS (10)
  - Arrhythmia [Unknown]
  - Ventricular arrhythmia [Unknown]
  - Seizure [Unknown]
  - Acute coronary syndrome [Unknown]
  - Drug interaction [Unknown]
  - Dehydration [Unknown]
  - Electrolyte imbalance [Unknown]
  - Vomiting [Unknown]
  - Nausea [Unknown]
  - Off label use [Unknown]
